FAERS Safety Report 8481574-0 (Version None)
Quarter: 2012Q3

REPORT INFORMATION
  Report Type: 
  Country: None (occurrence: None)
  Receive Date: 20120702
  Receipt Date: 20120622
  Transmission Date: 20120928
  Serious: Yes (Other)
  Sender: FDA-Public Use
  Company Number: CA-ASTRAZENECA-2012SE42416

PATIENT
  Age: 51 Year
  Sex: Female

DRUGS (4)
  1. ARIMIDEX [Suspect]
     Indication: BREAST CANCER
     Dosage: DAILY
     Route: 048
  2. FASLODEX [Suspect]
     Indication: BREAST CANCER
     Dosage: MONTHLY
     Route: 030
     Dates: start: 20120501
  3. ZOLADEX [Suspect]
     Indication: NEOPLASM MALIGNANT
     Route: 058
     Dates: start: 20090601
  4. TAMOXIFEN CITRATE [Suspect]
     Indication: BREAST CANCER
     Route: 048

REACTIONS (6)
  - METASTASES TO SPINE [None]
  - INCONTINENCE [None]
  - PARAESTHESIA [None]
  - TUMOUR MARKER INCREASED [None]
  - ABDOMINAL PAIN LOWER [None]
  - CHEST PAIN [None]
